FAERS Safety Report 19423347 (Version 1)
Quarter: 2021Q2

REPORT INFORMATION
  Report Type: Spontaneous
  Country: FR (occurrence: FR)
  Receive Date: 20210616
  Receipt Date: 20210616
  Transmission Date: 20210717
  Serious: Yes (Hospitalization, Other)
  Sender: FDA-Public Use
  Company Number: FR-ACCORD-228364

PATIENT
  Age: 94 Year
  Sex: Male

DRUGS (11)
  1. XARELTO [Interacting]
     Active Substance: RIVAROXABAN
     Indication: ATRIAL FIBRILLATION
     Dosage: 1/DAY
     Route: 048
     Dates: start: 20180901, end: 20210320
  2. TAHOR [Interacting]
     Active Substance: ATORVASTATIN CALCIUM
     Indication: DYSLIPIDAEMIA
     Dosage: 1/DAY
     Route: 048
     Dates: start: 20120601
  3. OMIX [Concomitant]
     Active Substance: TAMSULOSIN HYDROCHLORIDE
     Indication: PROSTATE CANCER
     Dosage: 1/DAY
     Route: 048
     Dates: start: 20090101
  4. FUROSEMIDE. [Suspect]
     Active Substance: FUROSEMIDE
     Indication: MYOCARDIAL ISCHAEMIA
     Dosage: 1/DAY
     Route: 048
     Dates: start: 20190629
  5. PAROXETINE. [Interacting]
     Active Substance: PAROXETINE
     Indication: DEPRESSION
     Dosage: 1/DAY
     Route: 048
     Dates: start: 20210318, end: 20210320
  6. MOLSIDOMINE [Concomitant]
     Active Substance: MOLSIDOMINE
     Indication: MYOCARDIAL ISCHAEMIA
     Dosage: 2 MGX3/DAY (1?1?1)
     Route: 048
     Dates: start: 20100326
  7. METOPROLOL. [Concomitant]
     Active Substance: METOPROLOL
     Indication: MYOCARDIAL ISCHAEMIA
     Dosage: 1/DAY
     Route: 048
     Dates: start: 20191201
  8. PREDNISOLONE BIOGARAN [Interacting]
     Active Substance: PREDNISOLONE
     Indication: PAIN
     Dosage: 10 MG IN THE MORNING
     Route: 048
     Dates: start: 20210318, end: 20210320
  9. OMEPRAZOLE. [Concomitant]
     Active Substance: OMEPRAZOLE
     Indication: GASTRIC ULCER
     Dosage: 1/DAY
     Route: 048
     Dates: start: 20090101
  10. INNOHEP [Concomitant]
     Active Substance: TINZAPARIN SODIUM
     Indication: THROMBOSIS PROPHYLAXIS
     Dosage: 1/DAY
     Route: 058
     Dates: start: 20210326
  11. IXPRIM [Concomitant]
     Active Substance: ACETAMINOPHEN\TRAMADOL HYDROCHLORIDE
     Indication: PAIN
     Dosage: 1/DAY
     Route: 048
     Dates: start: 20130901

REACTIONS (2)
  - Drug interaction [Unknown]
  - Rectal haemorrhage [Recovered/Resolved]

NARRATIVE: CASE EVENT DATE: 20210320
